FAERS Safety Report 6372291-1 (Version None)
Quarter: 2009Q3

REPORT INFORMATION
  Report Type: 
  Country: None (occurrence: None)
  Receive Date: 20090924
  Receipt Date: 20090914
  Transmission Date: 20100115
  Serious: Yes (Other)
  Sender: FDA-Public Use
  Company Number: US-BIOGENIDEC-2009BI030254

PATIENT
  Sex: Male

DRUGS (2)
  1. AVONEX [Suspect]
     Indication: DRUG USE FOR UNKNOWN INDICATION
     Route: 030
     Dates: start: 19990601, end: 20050306
  2. DUAL STUDY DRUG (NOS) [Concomitant]
     Indication: MULTIPLE SCLEROSIS

REACTIONS (1)
  - PROSTATE CANCER [None]
